FAERS Safety Report 16123523 (Version 1)
Quarter: 2019Q1

REPORT INFORMATION
  Report Type: Spontaneous
  Country: US (occurrence: US)
  Receive Date: 20190327
  Receipt Date: 20190327
  Transmission Date: 20190418
  Serious: Yes (Hospitalization)
  Sender: FDA-Public Use
  Company Number: US-VERTEX PHARMACEUTICALS-2019-002538

PATIENT
  Age: 19 Year
  Sex: Male

DRUGS (21)
  1. SYMDEKO [Suspect]
     Active Substance: IVACAFTOR\TEZACAFTOR
     Indication: CYSTIC FIBROSIS
     Dosage: 100MG TEZACAFTOR/150MG IVACAFTOR; 150MG IVACAFTOR, BID
     Route: 048
     Dates: start: 20180426
  2. HYDROCODONE BITARTRATE AND ACETAMINOPHEN [Concomitant]
     Active Substance: ACETAMINOPHEN\HYDROCODONE BITARTRATE
  3. MOXIFLOXACIN. [Concomitant]
     Active Substance: MOXIFLOXACIN
  4. CIPROFLOXACIN. [Concomitant]
     Active Substance: CIPROFLOXACIN
  5. TOBI [Concomitant]
     Active Substance: TOBRAMYCIN
  6. PULMOZYME [Concomitant]
     Active Substance: DORNASE ALFA
  7. ETHAMBUTOL [Concomitant]
     Active Substance: ETHAMBUTOL HYDROCHLORIDE
  8. CREON [Concomitant]
     Active Substance: PANCRELIPASE AMYLASE\PANCRELIPASE LIPASE\PANCRELIPASE PROTEASE
  9. VORICONAZOLE. [Concomitant]
     Active Substance: VORICONAZOLE
  10. LEVALBUTEROL                       /01419301/ [Concomitant]
     Active Substance: LEVALBUTEROL
  11. MONTELUKAST [Concomitant]
     Active Substance: MONTELUKAST SODIUM
  12. PHYTONADIONE. [Concomitant]
     Active Substance: PHYTONADIONE
  13. CAYSTON [Concomitant]
     Active Substance: AZTREONAM
  14. AZITHROMYCIN ANHYDROUS. [Concomitant]
     Active Substance: AZITHROMYCIN ANHYDROUS
  15. LANTUS [Concomitant]
     Active Substance: INSULIN GLARGINE
  16. OSELTAMIVIR [Concomitant]
     Active Substance: OSELTAMIVIR
  17. SODIUM CHLORIDE. [Concomitant]
     Active Substance: SODIUM CHLORIDE
  18. URSODIOL. [Concomitant]
     Active Substance: URSODIOL
  19. VITAMIN D3 [Concomitant]
     Active Substance: CHOLECALCIFEROL
  20. PREDNISONE. [Concomitant]
     Active Substance: PREDNISONE
  21. LEVOCETIRIZINE [Concomitant]
     Active Substance: LEVOCETIRIZINE

REACTIONS (1)
  - Cystic fibrosis respiratory infection suppression [Not Recovered/Not Resolved]

NARRATIVE: CASE EVENT DATE: 20190304
